FAERS Safety Report 8445116-8 (Version None)
Quarter: 2012Q2

REPORT INFORMATION
  Report Type: 
  Country: None (occurrence: None)
  Receive Date: 20120618
  Receipt Date: 20120612
  Transmission Date: 20120825
  Serious: Yes (Other)
  Sender: FDA-Public Use
  Company Number: US-PFIZER INC-2012141550

PATIENT
  Sex: Female
  Weight: 81.633 kg

DRUGS (4)
  1. HYDROCODONE [Concomitant]
     Dosage: UNK, 1X/DAY
  2. CHANTIX [Suspect]
     Dosage: 1 MG, 2X/DAY
     Route: 048
     Dates: start: 20120501, end: 20120611
  3. XANAX [Concomitant]
     Dosage: 1 MG, 4X/DAY
  4. CHANTIX [Suspect]
     Indication: SMOKING CESSATION THERAPY
     Dosage: 0.5 MG, 1X/DAY
     Route: 048
     Dates: start: 20120501, end: 20120501

REACTIONS (2)
  - AGGRESSION [None]
  - SUICIDAL IDEATION [None]
